FAERS Safety Report 16467770 (Version 2)
Quarter: 2019Q3

REPORT INFORMATION
  Report Type: Report from Study
  Country: None (occurrence: TW)
  Receive Date: 20190624
  Receipt Date: 20190711
  Transmission Date: 20191004
  Serious: Yes (Hospitalization)
  Sender: FDA-Public Use
  Company Number: TW-ABBVIE-19K-153-2824412-00

PATIENT
  Age: 45 Year
  Sex: Male
  Weight: 64 kg

DRUGS (10)
  1. HUMIRA [Suspect]
     Active Substance: ADALIMUMAB
     Indication: CROHN^S DISEASE
     Route: 058
     Dates: start: 20180119
  2. LEXOTAN [Concomitant]
     Active Substance: BROMAZEPAM
     Indication: CROHN^S DISEASE
     Route: 048
     Dates: start: 20150930
  3. PREDNISOLONE. [Concomitant]
     Active Substance: PREDNISOLONE
     Indication: CROHN^S DISEASE
     Route: 048
     Dates: start: 20100224
  4. DELIBS [Concomitant]
     Indication: CROHN^S DISEASE
     Route: 048
     Dates: start: 20100224
  5. NOLIDIN [Concomitant]
     Indication: CROHN^S DISEASE
     Route: 048
     Dates: start: 20171222
  6. FOSAMAX PLUS D [Concomitant]
     Active Substance: ALENDRONATE SODIUM\CHOLECALCIFEROL
     Indication: OSTEOPOROSIS
     Route: 048
     Dates: start: 20160610
  7. HUMIRA [Suspect]
     Active Substance: ADALIMUMAB
     Indication: CROHN^S DISEASE
     Route: 058
     Dates: start: 20151127, end: 20171222
  8. PROTASE [Concomitant]
     Indication: CROHN^S DISEASE
     Route: 048
     Dates: start: 20111123
  9. MEZAVANT XL [Concomitant]
     Active Substance: MESALAMINE
     Indication: CROHN^S DISEASE
     Dosage: XL
     Route: 048
     Dates: start: 20140528
  10. IMURAN [Concomitant]
     Active Substance: AZATHIOPRINE
     Indication: CROHN^S DISEASE
     Route: 048
     Dates: start: 20110504

REACTIONS (6)
  - Spinal osteoarthritis [Unknown]
  - Ureteric obstruction [Recovered/Resolved]
  - Ureterolithiasis [Recovered/Resolved]
  - Scoliosis [Unknown]
  - Hydroureter [Recovered/Resolved]
  - Hydronephrosis [Unknown]

NARRATIVE: CASE EVENT DATE: 20190610
